FAERS Safety Report 5869325-7 (Version None)
Quarter: 2008Q3

REPORT INFORMATION
  Report Type: 
  Country: None (occurrence: None)
  Receive Date: 20080828
  Receipt Date: 20080818
  Transmission Date: 20090109
  Serious: Yes (Other)
  Sender: FDA-Public Use
  Company Number: WAES 0706GBR00094

PATIENT
  Age: 40 Year
  Sex: Male

DRUGS (7)
  1. ISENTRESS [Suspect]
     Indication: HIV INFECTION
     Dosage: 400 MG/BID, PO
     Route: 048
     Dates: start: 20070416
  2. DARUNAVIR (+) RITONAVIR [Suspect]
     Indication: HIV INFECTION
     Dosage: 600/100 MG/BID
     Dates: start: 20070416
  3. DARUNAVIR (+) RITONAVIR [Suspect]
     Indication: PATHOGEN RESISTANCE
     Dosage: 600/100 MG/BID
     Dates: start: 20070416
  4. AZITHROMYCIN [Concomitant]
  5. DAPSONE [Concomitant]
  6. LAMIVUDINE AND ZIDOVUDINE [Concomitant]
  7. TENOFOVIR [Concomitant]

REACTIONS (7)
  - ARTHRALGIA [None]
  - CHONDROCALCINOSIS PYROPHOSPHATE [None]
  - ERYTHEMA [None]
  - GOUT [None]
  - LOCAL SWELLING [None]
  - MEAN CELL VOLUME INCREASED [None]
  - PAIN [None]
